FAERS Safety Report 5817295-X (Version None)
Quarter: 2008Q3

REPORT INFORMATION
  Report Type: 
  Country: None (occurrence: None)
  Receive Date: 20080722
  Receipt Date: 20080715
  Transmission Date: 20090109
  Serious: Yes (Hospitalization)
  Sender: FDA-Public Use
  Company Number: B0529302A

PATIENT
  Age: 19 Year
  Sex: Female

DRUGS (6)
  1. SALBUMOL [Suspect]
     Route: 054
     Dates: start: 20080523, end: 20080523
  2. NICARDIPINE HCL [Suspect]
     Route: 042
     Dates: start: 20080523, end: 20080525
  3. HYDROCORTISONE [Suspect]
     Indication: PRENATAL CARE
     Route: 042
     Dates: start: 20080523, end: 20080523
  4. POTASSIUM CHLORIDE [Concomitant]
     Dosage: 2UNIT PER DAY
     Route: 048
     Dates: start: 20080524, end: 20080526
  5. TARDYFERON [Concomitant]
     Dosage: 2UNIT PER DAY
     Route: 048
     Dates: start: 20080524, end: 20080526
  6. FOLIC ACID [Concomitant]
     Dosage: 2UNIT PER DAY
     Route: 048
     Dates: start: 20080524, end: 20080526

REACTIONS (8)
  - CHEST PAIN [None]
  - DRUG EXPOSURE DURING PREGNANCY [None]
  - DYSPNOEA [None]
  - FLUID OVERLOAD [None]
  - LEFT VENTRICULAR FAILURE [None]
  - PAINFUL RESPIRATION [None]
  - PULMONARY OEDEMA [None]
  - RALES [None]
